FAERS Safety Report 5270002-4 (Version None)
Quarter: 2007Q1

REPORT INFORMATION
  Report Type: 
  Country: None (occurrence: None)
  Receive Date: 20070320
  Receipt Date: 20070309
  Transmission Date: 20070707
  Serious: Yes (Death)
  Sender: FDA-Public Use
  Company Number: JP-MERCK-0703USA02656

PATIENT
  Age: 77 Year
  Sex: Male

DRUGS (8)
  1. STROMECTOL [Suspect]
     Indication: ACARODERMATITIS
     Route: 048
     Dates: start: 20061228, end: 20061228
  2. ALLOPURINOL [Concomitant]
     Route: 048
  3. GASTER [Concomitant]
     Route: 065
  4. CALTAN [Concomitant]
     Route: 048
  5. ARTIST [Concomitant]
     Route: 048
  6. HERBESSER [Concomitant]
     Route: 065
  7. ASPIRIN [Concomitant]
     Route: 065
  8. CELTECT [Concomitant]
     Route: 065

REACTIONS (1)
  - SUDDEN DEATH [None]
